FAERS Safety Report 5638245-5 (Version None)
Quarter: 2008Q1

REPORT INFORMATION
  Report Type: 
  Country: None (occurrence: None)
  Receive Date: 20080221
  Receipt Date: 20080206
  Transmission Date: 20080703
  Serious: No
  Sender: FDA-Public Use
  Company Number: TPA2008A00169

PATIENT
  Sex: Female

DRUGS (18)
  1. ROZEREM [Suspect]
     Indication: SLEEP DISORDER
     Dosage: 8 MG, HS, PER ORAL
     Route: 048
     Dates: start: 20080101
  2. RAZADYNE [Suspect]
     Dosage: 8 MG, HS, PER ORAL
     Route: 048
     Dates: start: 20080101, end: 20080101
  3. GEODON [Concomitant]
  4. METFORMIN HCL [Concomitant]
  5. BACLOFEN [Concomitant]
  6. HYDROCHLOROTHIAZIDE [Concomitant]
  7. GLYBURIDE [Concomitant]
  8. CELEXA [Concomitant]
  9. LISINOPRIL [Concomitant]
  10. LIPITOR [Concomitant]
  11. SINGULAIR [Concomitant]
  12. NORTRIPTYLINE HCL [Concomitant]
  13. PROCHLORPERAZINE MALEATE [Concomitant]
  14. PHENTERMINE [Concomitant]
  15. PRILOSEC [Concomitant]
  16. CHANTIX [Concomitant]
  17. ALBUTEROL [Concomitant]
  18. AMBIEN [Concomitant]

REACTIONS (4)
  - ABNORMAL DREAMS [None]
  - DRUG DISPENSING ERROR [None]
  - SOMNOLENCE [None]
  - WRONG DRUG ADMINISTERED [None]
